FAERS Safety Report 9805491 (Version 2)
Quarter: 2014Q1

REPORT INFORMATION
  Report Type: Spontaneous
  Country: US (occurrence: None)
  Receive Date: 20140107
  Receipt Date: 20140122
  Transmission Date: 20141002
  Serious: Yes (Hospitalization, Other)
  Sender: FDA-Public Use
  Company Number: AUR-APL-2014-00004

PATIENT
  Age: 35 Year
  Sex: Male

DRUGS (3)
  1. VENLAFAXINE [Suspect]
     Indication: SCHIZOPHRENIA
     Dosage: 10-15 PILLS PER DAY
  2. RISPERIDONE (RISPERIDONE) [Concomitant]
  3. SERTRALINE (SERTRALINE) [Concomitant]

REACTIONS (5)
  - Delusion [None]
  - Hallucination, auditory [None]
  - Drug abuse [None]
  - Abnormal behaviour [None]
  - Incorrect dose administered [None]
